FAERS Safety Report 6223478-X (Version None)
Quarter: 2009Q2

REPORT INFORMATION
  Report Type: 
  Country: None (occurrence: None)
  Receive Date: 20090611
  Receipt Date: 20090609
  Transmission Date: 20091009
  Serious: Yes (Death)
  Sender: FDA-Public Use
  Company Number: FR-ABBOTT-09P-056-0578665-00

PATIENT
  Sex: Male

DRUGS (4)
  1. NORVIR [Suspect]
     Indication: HIV INFECTION
     Route: 048
     Dates: start: 20040401, end: 20090414
  2. ZIAGEN [Suspect]
     Indication: HIV INFECTION
     Dates: start: 20040401, end: 20060612
  3. KIVEXA [Suspect]
     Indication: HIV INFECTION
     Route: 048
     Dates: start: 20060612, end: 20090414
  4. REYATAZ [Suspect]
     Indication: HIV INFECTION
     Route: 048
     Dates: start: 20050907, end: 20090414

REACTIONS (13)
  - ARTERIOSCLEROSIS CORONARY ARTERY [None]
  - BLOOD PRESSURE DECREASED [None]
  - CARDIAC ARREST [None]
  - CLONUS [None]
  - COMA [None]
  - CORONARY ARTERY OCCLUSION [None]
  - HYPERGLYCAEMIA [None]
  - LIPID METABOLISM DISORDER [None]
  - MALAISE [None]
  - METABOLIC ACIDOSIS [None]
  - MYOCARDIAL INFARCTION [None]
  - NEUROLOGICAL DECOMPENSATION [None]
  - VENTRICULAR FIBRILLATION [None]
